FAERS Safety Report 14974661 (Version 2)
Quarter: 2018Q2

REPORT INFORMATION
  Report Type: Spontaneous
  Country: JP (occurrence: JP)
  Receive Date: 20180605
  Receipt Date: 20180612
  Transmission Date: 20180711
  Serious: Yes (Hospitalization)
  Sender: FDA-Public Use
  Company Number: JP-BAYER-2018-104309

PATIENT
  Age: 79 Year
  Sex: Male

DRUGS (1)
  1. BAYASPIRIN 100 MG [Suspect]
     Active Substance: ASPIRIN
     Dosage: DAILY DOSE 100 MG
     Route: 048

REACTIONS (2)
  - Prostate cancer [None]
  - Dyschezia [None]

NARRATIVE: CASE EVENT DATE: 201805
